FAERS Safety Report 7126856-X (Version None)
Quarter: 2010Q4

REPORT INFORMATION
  Report Type: 
  Country: None (occurrence: None)
  Receive Date: 20101129
  Receipt Date: 20091026
  Transmission Date: 20110411
  Serious: No
  Sender: FDA-Public Use
  Company Number: US-PFIZER INC-2009289235

PATIENT
  Sex: Male
  Weight: 73.5 kg

DRUGS (5)
  1. VIAGRA [Suspect]
     Dosage: 50 MG, UNK
     Route: 048
  2. CRESTOR [Concomitant]
     Indication: BLOOD CHOLESTEROL INCREASED
     Dosage: 10 MG, 1X/DAY
     Route: 048
  3. DICLOFENAC SODIUM [Concomitant]
     Indication: INFLAMMATION
     Dosage: 75 MG, 2X/DAY
     Route: 048
  4. DICLOFENAC SODIUM [Concomitant]
     Indication: SPINAL OSTEOARTHRITIS
  5. DICLOFENAC SODIUM [Concomitant]
     Indication: ARTHRITIS

REACTIONS (3)
  - GENITAL RASH [None]
  - SCROTAL ERYTHEMA [None]
  - TESTICULAR PAIN [None]
